FAERS Safety Report 8137861-9 (Version None)
Quarter: 2012Q1

REPORT INFORMATION
  Report Type: 
  Country: None (occurrence: None)
  Receive Date: 20120215
  Receipt Date: 20120206
  Transmission Date: 20120608
  Serious: Yes (Hospitalization)
  Sender: FDA-Public Use
  Company Number: US-BAYER-2011-022520

PATIENT
  Age: 39 Year
  Sex: Female
  Weight: 74.83 kg

DRUGS (8)
  1. YAZ [Suspect]
     Indication: CONTRACEPTION
     Dosage: UNK
     Route: 048
     Dates: start: 20070723, end: 20071108
  2. DILAUDID [Concomitant]
     Dosage: UNK UNK, PRN
  3. FLAGYL [Concomitant]
     Dosage: 500 MG, QID
     Route: 042
  4. WELLBUTRIN [Concomitant]
     Dosage: 300 MG, QD
     Route: 048
  5. FLUOXETINE [Concomitant]
     Route: 048
  6. LEVAQUIN [Concomitant]
     Dosage: 500 MG, QD
     Route: 042
  7. PROTONIX [Concomitant]
     Dosage: 40 MG, QD
     Route: 048
  8. PHENERGAN [Concomitant]
     Dosage: UNK UNK, PRN

REACTIONS (2)
  - PAIN [None]
  - PULMONARY EMBOLISM [None]
